FAERS Safety Report 11294939 (Version 2)
Quarter: 2015Q4

REPORT INFORMATION
  Report Type: Spontaneous
  Country: BR (occurrence: BR)
  Receive Date: 20150723
  Receipt Date: 20151023
  Transmission Date: 20160304
  Serious: Yes (Life-Threatening, Hospitalization)
  Sender: FDA-Public Use
  Company Number: BR-ASTRAZENECA-2015SE69326

PATIENT
  Age: 3543 Week
  Sex: Female
  Weight: 62 kg

DRUGS (3)
  1. FORXIGA [Suspect]
     Active Substance: DAPAGLIFLOZIN
     Indication: DIABETES MELLITUS
     Route: 048
  2. FORXIGA [Suspect]
     Active Substance: DAPAGLIFLOZIN
     Indication: DIABETES MELLITUS
     Route: 048
     Dates: start: 201506, end: 201507
  3. INSULIN [Concomitant]
     Active Substance: INSULIN NOS
     Dosage: THREE TIMES A DAY

REACTIONS (4)
  - Weight decreased [Recovered/Resolved]
  - Ankle fracture [Unknown]
  - Blood glucose increased [Unknown]
  - Malaise [Recovered/Resolved]

NARRATIVE: CASE EVENT DATE: 201506
